FAERS Safety Report 5626934-8 (Version None)
Quarter: 2008Q1

REPORT INFORMATION
  Report Type: 
  Country: None (occurrence: None)
  Receive Date: 20080212
  Receipt Date: 20071212
  Transmission Date: 20080703
  Serious: Yes (Other)
  Sender: FDA-Public Use
  Company Number: MK-6030514

PATIENT
  Age: 24 Year
  Sex: Female

DRUGS (3)
  1. AMNESTEEM [Suspect]
     Indication: DRUG USE FOR UNKNOWN INDICATION
     Dosage: ORAL
     Route: 048
     Dates: end: 20070101
  2. AMNESTEEM [Suspect]
     Dosage: ORAL
     Route: 048
     Dates: start: 20060926, end: 20070101
  3. ISOTRETINOIN [Concomitant]

REACTIONS (2)
  - DRUG EXPOSURE DURING PREGNANCY [None]
  - PREGNANCY [None]
